FAERS Safety Report 9426773 (Version 1)
Quarter: 2013Q3

REPORT INFORMATION
  Report Type: Spontaneous
  Country: US (occurrence: US)
  Receive Date: 20130730
  Receipt Date: 20130730
  Transmission Date: 20140515
  Serious: Yes (Other)
  Sender: FDA-Public Use
  Company Number: US-SANOFI-AVENTIS-2012SA065481

PATIENT
  Sex: Female

DRUGS (1)
  1. AMBIEN CR [Suspect]
     Route: 048
     Dates: start: 2010

REACTIONS (2)
  - Impaired driving ability [Unknown]
  - Incorrect drug administration duration [Unknown]
